FAERS Safety Report 13777624 (Version 1)
Quarter: 2017Q3

REPORT INFORMATION
  Report Type: Spontaneous
  Country: US (occurrence: US)
  Receive Date: 20170721
  Receipt Date: 20170721
  Transmission Date: 20171127
  Serious: Yes (Hospitalization)
  Sender: FDA-Public Use
  Company Number: PHHY2017US105106

PATIENT
  Age: 64 Year
  Sex: Male

DRUGS (1)
  1. SECUKINUMAB [Suspect]
     Active Substance: SECUKINUMAB
     Indication: PSORIASIS
     Dosage: 300 MG, QW
     Route: 058

REACTIONS (10)
  - Endophthalmitis [Unknown]
  - Blindness [Unknown]
  - Cellulitis [Unknown]
  - Visual impairment [Unknown]
  - Eye pain [Unknown]
  - Vitreous floaters [Unknown]
  - Eye inflammation [Unknown]
  - Cataract [Unknown]
  - Osteomyelitis acute [Recovered/Resolved]
  - Bacteraemia [Unknown]
